FAERS Safety Report 12037448 (Version 1)
Quarter: 2016Q1

REPORT INFORMATION
  Report Type: Spontaneous
  Country: US (occurrence: None)
  Receive Date: 20160205
  Receipt Date: 20160205
  Transmission Date: 20160526
  Serious: Yes (Death)
  Sender: FDA-Public Use
  Company Number: None

PATIENT
  Age: 29 Year
  Sex: Male
  Weight: 81.4 kg

DRUGS (2)
  1. PROPOFOL. [Suspect]
     Active Substance: PROPOFOL
     Indication: CHOLECYSTECTOMY
     Dosage: 200 MG ANESTHESIA IV
     Route: 042
     Dates: start: 20160108
  2. PROPOFOL. [Suspect]
     Active Substance: PROPOFOL
     Indication: POSTURING
     Dosage: 200 MG ANESTHESIA IV
     Route: 042
     Dates: start: 20160108

REACTIONS (6)
  - Haemodynamic instability [None]
  - Seizure [None]
  - Posturing [None]
  - Heart rate decreased [None]
  - Pulse pressure decreased [None]
  - Blood pressure decreased [None]

NARRATIVE: CASE EVENT DATE: 20160108
